FAERS Safety Report 13795550 (Version 2)
Quarter: 2018Q2

REPORT INFORMATION
  Report Type: Not Available
  Country: US (occurrence: US)
  Receive Date: 20170726
  Receipt Date: 20180508
  Transmission Date: 20180711
  Serious: No
  Sender: FDA-Public Use
  Company Number: US-NEUROCRINE BIOSCIENCES INC.-2017NBI00427

PATIENT
  Age: 60 Year
  Sex: Male

DRUGS (6)
  1. VENLAFAXINE ER [Concomitant]
     Active Substance: VENLAFAXINE HYDROCHLORIDE
     Route: 048
  2. INGREZZA [Suspect]
     Active Substance: VALBENAZINE
     Indication: TARDIVE DYSKINESIA
     Route: 048
     Dates: start: 20170621, end: 20170627
  3. MEMANTINE. [Concomitant]
     Active Substance: MEMANTINE
     Route: 048
     Dates: start: 20170228
  4. HYDROCODONE/ACETAMINOPHEN [Concomitant]
     Active Substance: ACETAMINOPHEN\HYDROCODONE
     Indication: PAIN
     Dosage: 75/325 MG Q4-6H PRN
     Route: 048
     Dates: start: 201707
  5. INGREZZA [Suspect]
     Active Substance: VALBENAZINE
     Route: 048
     Dates: start: 20170628
  6. GABAPENTIN. [Concomitant]
     Active Substance: GABAPENTIN
     Indication: DYSTONIA
     Route: 048

REACTIONS (5)
  - Disorientation [Recovered/Resolved]
  - Drug ineffective [None]
  - Somnolence [Unknown]
  - Dyskinesia [Not Recovered/Not Resolved]
  - Drug effect decreased [None]

NARRATIVE: CASE EVENT DATE: 201706
